FAERS Safety Report 9162161 (Version 2)
Quarter: 2013Q2

REPORT INFORMATION
  Report Type: Report from Study
  Country: AU (occurrence: AU)
  Receive Date: 20130314
  Receipt Date: 20130506
  Transmission Date: 20140414
  Serious: Yes (Hospitalization)
  Sender: FDA-Public Use
  Company Number: PHHY2013AU024262

PATIENT
  Sex: Female

DRUGS (3)
  1. ACLASTA [Suspect]
     Dosage: UNK
     Route: 042
     Dates: start: 20100105
  2. ACLASTA [Suspect]
     Dosage: UNK
     Route: 042
     Dates: start: 20110225
  3. ACLASTA [Suspect]
     Dosage: UNK
     Route: 042
     Dates: start: 20120123

REACTIONS (3)
  - Infection [Unknown]
  - Confusional state [Unknown]
  - Asthenia [Unknown]
